FAERS Safety Report 6405870-3 (Version None)
Quarter: 2009Q4

REPORT INFORMATION
  Report Type: 
  Country: None (occurrence: None)
  Receive Date: 20091014
  Receipt Date: 20090930
  Transmission Date: 20100525
  Serious: Yes (Hospitalization)
  Sender: FDA-Public Use
  Company Number: 2009AC000064

PATIENT
  Age: 83 Year
  Sex: Male

DRUGS (9)
  1. DIGOXIN [Suspect]
     Dosage: PO
     Route: 048
     Dates: start: 20071224, end: 20080607
  2. VESICARE [Concomitant]
  3. DITROPAN [Concomitant]
  4. OXYBUTYNIN CHLORIDE [Concomitant]
  5. ARICEPT [Concomitant]
  6. CLONIDINE [Concomitant]
  7. LEVOTHYROXINE SODIUM [Concomitant]
  8. OMEPRAZOLE [Concomitant]
  9. POTASSIUM CHLORIDE [Concomitant]

REACTIONS (30)
  - AMNESIA [None]
  - ANHEDONIA [None]
  - ANXIETY [None]
  - ASTHENIA [None]
  - ATRIAL FIBRILLATION [None]
  - BRADYCARDIA [None]
  - COMMUNICATION DISORDER [None]
  - CONDITION AGGRAVATED [None]
  - CONTUSION [None]
  - DEEP VEIN THROMBOSIS [None]
  - DIARRHOEA [None]
  - DYSARTHRIA [None]
  - ECONOMIC PROBLEM [None]
  - FACE INJURY [None]
  - FACIAL PALSY [None]
  - FALL [None]
  - HYPERTONIC BLADDER [None]
  - HYPOTENSION [None]
  - HYPOVOLAEMIA [None]
  - JOINT INJURY [None]
  - MULTIPLE INJURIES [None]
  - OEDEMA PERIPHERAL [None]
  - OVERDOSE [None]
  - PAIN [None]
  - PARKINSON'S DISEASE [None]
  - QUALITY OF LIFE DECREASED [None]
  - RIB FRACTURE [None]
  - SYNCOPE [None]
  - THERAPEUTIC AGENT TOXICITY [None]
  - URGE INCONTINENCE [None]
